FAERS Safety Report 17755693 (Version 1)
Quarter: 2020Q2

REPORT INFORMATION
  Report Type: Spontaneous
  Country: US (occurrence: US)
  Receive Date: 20200507
  Receipt Date: 20200507
  Transmission Date: 20200714
  Serious: No
  Sender: FDA-Public Use
  Company Number: US-SA-2020SA112793

PATIENT
  Age: 65 Year
  Sex: Female

DRUGS (12)
  1. DUPIXENT [Suspect]
     Active Substance: DUPILUMAB
     Dosage: 300 MG, Q2M
     Route: 058
     Dates: start: 2020
  2. TOLTERODINE [Concomitant]
     Active Substance: TOLTERODINE
  3. VITAMIN D [VITAMIN D NOS] [Concomitant]
     Active Substance: VITAMIN D NOS
  4. ATENOLOL. [Concomitant]
     Active Substance: ATENOLOL
  5. RANITIDINE. [Concomitant]
     Active Substance: RANITIDINE
  6. GABAPENTIN. [Concomitant]
     Active Substance: GABAPENTIN
  7. CALCITRIOL. [Concomitant]
     Active Substance: CALCITRIOL
  8. HYDROXYZINE [Concomitant]
     Active Substance: HYDROXYZINE HYDROCHLORIDE
  9. OTEZLA [Concomitant]
     Active Substance: APREMILAST
  10. DUPIXENT [Suspect]
     Active Substance: DUPILUMAB
     Indication: PRODUCT USED FOR UNKNOWN INDICATION
     Dosage: 300 MG, QOW
     Route: 058
     Dates: start: 20200227, end: 2020
  11. COSENTYX [Concomitant]
     Active Substance: SECUKINUMAB
  12. DULOXETINE. [Concomitant]
     Active Substance: DULOXETINE

REACTIONS (1)
  - Product use issue [Unknown]

NARRATIVE: CASE EVENT DATE: 2020
